FAERS Safety Report 8901839 (Version 2)
Quarter: 2014Q1

REPORT INFORMATION
  Report Type: Spontaneous
  Country: US (occurrence: None)
  Receive Date: 20121107
  Receipt Date: 20140311
  Transmission Date: 20141002
  Serious: Yes (Other)
  Sender: FDA-Public Use
  Company Number: FK201203265

PATIENT
  Age: 86 Year
  Sex: 0

DRUGS (3)
  1. FLUDARABINE PHOSPHATE [Suspect]
     Indication: PRODUCT USED FOR UNKNOWN INDICATION
     Dosage: 40 MG, CYCLE 1, DAY 1-2-3?(NOT OTHERWISE SPECIFIED)
     Route: 042
     Dates: start: 20100902, end: 20100930
  2. CYCLOPHOSPHAMIDE (CYCLOPHOSPHAMIDE) [Suspect]
     Indication: PRODUCT USED FOR UNKNOWN INDICATION
     Dosage: 350 MG, CYCLE 2, DAY 4,?(NOT OTHERWISE SPECIFIED)
     Route: 042
     Dates: start: 20100930, end: 20100930
  3. RITUXIMAB [Suspect]
     Indication: PRODUCT USED FOR UNKNOWN INDICATION
     Dosage: 600MG, CYCLE2, DAY 1?(NOT OTHERWISE SPECIFIED)
     Route: 042
     Dates: start: 20100927, end: 20100927

REACTIONS (7)
  - Anaemia [None]
  - Chronic lymphocytic leukaemia [None]
  - Mucosal inflammation [None]
  - Failure to thrive [None]
  - Gastrointestinal fungal infection [None]
  - Gastrointestinal viral infection [None]
  - Pancytopenia [None]
